FAERS Safety Report 5514390-X (Version None)
Quarter: 2007Q4

REPORT INFORMATION
  Report Type: 
  Country: None (occurrence: None)
  Receive Date: 20071113
  Receipt Date: 20070507
  Transmission Date: 20080405
  Serious: No
  Sender: FDA-Public Use
  Company Number: A0650243A

PATIENT
  Age: 63 Year
  Sex: Female

DRUGS (5)
  1. COREG [Suspect]
     Dosage: 6.25MG THREE TIMES PER DAY
     Route: 048
     Dates: start: 20050201
  2. BENICAR [Concomitant]
  3. LASIX [Concomitant]
  4. DIGITEK [Concomitant]
  5. RESTORIL [Concomitant]

REACTIONS (1)
  - SINUS HEADACHE [None]
